FAERS Safety Report 5068949-7 (Version None)
Quarter: 2006Q3

REPORT INFORMATION
  Report Type: 
  Country: None (occurrence: None)
  Receive Date: 20060802
  Receipt Date: 20060721
  Transmission Date: 20061208
  Serious: Yes (Other)
  Sender: FDA-Public Use
  Company Number: GR-BRISTOL-MYERS SQUIBB COMPANY-13449145

PATIENT
  Age: 32 Year
  Sex: Male

DRUGS (2)
  1. ABILIFY [Suspect]
     Indication: SCHIZOPHRENIA, DISORGANISED TYPE
     Dosage: 30 MG/DAY X 2 YEARS, INCREASED TO 2 X 30 MG/DAY 1 TO 1.5 MONTHS PRIOR TO EVENT ONSET
     Route: 048
  2. DEPAKENE [Concomitant]
     Dosage: INITIATED ONE MONTH TO ONE WEEK AGO
     Dates: start: 20060101

REACTIONS (3)
  - DELUSION [None]
  - HALLUCINATION [None]
  - SCHIZOPHRENIA [None]
